FAERS Safety Report 12894264 (Version 1)
Quarter: 2016Q4

REPORT INFORMATION
  Report Type: Spontaneous
  Country: PT (occurrence: PT)
  Receive Date: 20161028
  Receipt Date: 20161028
  Transmission Date: 20170207
  Serious: Yes (Other)
  Sender: FDA-Public Use
  Company Number: PT-SA-2016SA191731

PATIENT
  Age: 19 Year
  Sex: Male

DRUGS (17)
  1. CYTARABINE. [Suspect]
     Active Substance: CYTARABINE
     Indication: ACUTE MYELOID LEUKAEMIA
     Dosage: FREQUENCY: DAY 1-5, 4H AFTER FLUDARABINE, INFUSION 3H.
     Route: 042
     Dates: start: 201406
  2. MITOXANTRONE [Suspect]
     Active Substance: MITOXANTRONE HYDROCHLORIDE
     Indication: ACUTE MYELOID LEUKAEMIA
     Dosage: FREQUENCY: DAY 3-5 INFUSION 1 HOUR
     Route: 042
     Dates: start: 201404
  3. CYTARABINE. [Suspect]
     Active Substance: CYTARABINE
     Indication: ACUTE MYELOID LEUKAEMIA
     Dosage: FREQUENCY: (DAY 1-2 THEN ON DAY 3-8 AT 30 MIN INFUSION EVERY 12 HOURS);
     Route: 042
     Dates: start: 201403
  4. CYTARABINE. [Suspect]
     Active Substance: CYTARABINE
     Indication: ACUTE MYELOID LEUKAEMIA
     Dosage: FREQUENCY: DAY 1-3 EVERY 12H INFUSION 2H
     Route: 042
     Dates: start: 201404
  5. ETOPOSIDE. [Suspect]
     Active Substance: ETOPOSIDE
     Indication: ACUTE MYELOID LEUKAEMIA
     Dosage: FREQUECNY: DAY 1-5 INFUSION 2H
     Route: 042
     Dates: start: 201402
  6. MITOXANTRONE [Suspect]
     Active Substance: MITOXANTRONE HYDROCHLORIDE
     Indication: ACUTE MYELOID LEUKAEMIA
     Dosage: FREQUENCY: DAY 6-10 INFUSION 1 HOUR
     Route: 042
     Dates: start: 201402
  7. METHOTREXATE SODIUM. [Suspect]
     Active Substance: METHOTREXATE SODIUM
     Indication: ACUTE MYELOID LEUKAEMIA
     Route: 037
     Dates: start: 201405
  8. METHOTREXATE SODIUM. [Suspect]
     Active Substance: METHOTREXATE SODIUM
     Indication: ACUTE MYELOID LEUKAEMIA
     Route: 037
     Dates: start: 201402
  9. ETOPOSIDE. [Suspect]
     Active Substance: ETOPOSIDE
     Indication: ACUTE MYELOID LEUKAEMIA
     Dosage: FREQUECNY: DAY 1-5 INFUSION 1H
     Route: 042
     Dates: start: 201405
  10. CYTARABINE. [Suspect]
     Active Substance: CYTARABINE
     Indication: ACUTE MYELOID LEUKAEMIA
     Dosage: FREQUECY: 12H ON DAY 6-12
     Route: 042
     Dates: start: 201402
  11. CYTARABINE. [Suspect]
     Active Substance: CYTARABINE
     Indication: ACUTE MYELOID LEUKAEMIA
     Dosage: FREQUENCY: DAY 1-3 EVERY 12H INFUSION 2H
     Route: 042
     Dates: start: 201405
  12. METHOTREXATE SODIUM. [Suspect]
     Active Substance: METHOTREXATE SODIUM
     Indication: ACUTE MYELOID LEUKAEMIA
     Route: 037
     Dates: start: 201406
  13. ETOPOSIDE. [Suspect]
     Active Substance: ETOPOSIDE
     Indication: ACUTE MYELOID LEUKAEMIA
     Dosage: FREQUECNY: DAY 6-8 INFUSION 2H
     Route: 042
     Dates: start: 201403
  14. FLUDARABINE PHOSPHATE. [Suspect]
     Active Substance: FLUDARABINE PHOSPHATE
     Indication: ACUTE MYELOID LEUKAEMIA
     Dosage: CYCLIC: DAY1-5 INFUAION 30 MIN
     Route: 042
     Dates: start: 201406
  15. METHOTREXATE SODIUM. [Suspect]
     Active Substance: METHOTREXATE SODIUM
     Indication: ACUTE MYELOID LEUKAEMIA
     Route: 037
     Dates: start: 201403
  16. METHOTREXATE SODIUM. [Suspect]
     Active Substance: METHOTREXATE SODIUM
     Indication: ACUTE MYELOID LEUKAEMIA
     Route: 037
     Dates: start: 201404
  17. DAUNOXOME [Suspect]
     Active Substance: DAUNORUBICIN CITRATE
     Indication: ACUTE MYELOID LEUKAEMIA
     Dosage: FREQUENCY: DAY 2,4,(REGIMEN #1 6 INFUSION 1H)
     Route: 042
     Dates: start: 201403

REACTIONS (6)
  - Enterocolitis [Unknown]
  - Sepsis [Unknown]
  - Neoplasm recurrence [Unknown]
  - Febrile neutropenia [Unknown]
  - Ulcer [Unknown]
  - Mucosal inflammation [Unknown]

NARRATIVE: CASE EVENT DATE: 201402
